FAERS Safety Report 17114650 (Version 3)
Quarter: 2019Q4

REPORT INFORMATION
  Report Type: Report from Study
  Country: NL (occurrence: NL)
  Receive Date: 20191205
  Receipt Date: 20191216
  Transmission Date: 20200122
  Serious: Yes (Life-Threatening, Hospitalization)
  Sender: FDA-Public Use
  Company Number: NL-ROCHE-2485529

PATIENT
  Age: 76 Year
  Sex: Female

DRUGS (4)
  1. PERTUZUMAB. [Suspect]
     Active Substance: PERTUZUMAB
     Indication: HER-2 POSITIVE BREAST CANCER
     Dosage: DATE OF MOST RECENT DOSE OF PERTUZUMAB: 08/NOV/2019
     Route: 042
     Dates: start: 20191108
  2. TRASTUZUMAB. [Suspect]
     Active Substance: TRASTUZUMAB
     Indication: HER-2 POSITIVE BREAST CANCER
     Dosage: DATE OF MOST RECENT DOSE OF TRASTUZUMAB: 08/NOV/2019
     Route: 042
     Dates: start: 20191108
  3. PACLITAXEL. [Suspect]
     Active Substance: PACLITAXEL
     Indication: HER-2 POSITIVE BREAST CANCER
     Dosage: DATE OF MOST RECENT DOSE OF PACLITAXEL: 08/NOV/2019
     Route: 042
     Dates: start: 20191108
  4. CARBOPLATIN. [Suspect]
     Active Substance: CARBOPLATIN
     Indication: HER-2 POSITIVE BREAST CANCER
     Dosage: DATE OF MOST RECENT DOSE OF CARBOPLATIN: 08/NOV/2019
     Route: 042
     Dates: start: 20191108

REACTIONS (1)
  - Dehydration [Recovered/Resolved]

NARRATIVE: CASE EVENT DATE: 20191124
